FAERS Safety Report 7170351-9 (Version None)
Quarter: 2010Q4

REPORT INFORMATION
  Report Type: 
  Country: None (occurrence: None)
  Receive Date: 20101217
  Receipt Date: 20101208
  Transmission Date: 20110411
  Serious: Yes (Other)
  Sender: FDA-Public Use
  Company Number: CHPA2010US18849

PATIENT
  Sex: Male

DRUGS (2)
  1. PREVACID 24 HR [Suspect]
     Indication: DYSPEPSIA
     Dosage: UNK, UNK
     Route: 048
     Dates: start: 20100101
  2. PREVACID [Suspect]
     Dosage: UNK, UNK
     Route: 048

REACTIONS (5)
  - INTENTIONAL DRUG MISUSE [None]
  - MALAISE [None]
  - OFF LABEL USE [None]
  - OVERDOSE [None]
  - VOMITING [None]
